FAERS Safety Report 23704927 (Version 1)
Quarter: 2024Q2

REPORT INFORMATION
  Report Type: Spontaneous
  Country: ZA (occurrence: ZA)
  Receive Date: 20240404
  Receipt Date: 20240404
  Transmission Date: 20240716
  Serious: Yes (Hospitalization, Other)
  Sender: FDA-Public Use
  Company Number: ZA-LUPIN PHARMACEUTICALS INC.-2024-02741

PATIENT

DRUGS (11)
  1. LOSARTAN POTASSIUM [Suspect]
     Active Substance: LOSARTAN POTASSIUM
     Indication: Hypertension
     Dosage: 100 MG, QD, 1 TABLET DAILY
     Route: 048
  2. RISPERIDONE [Suspect]
     Active Substance: RISPERIDONE
     Indication: Depression
     Dosage: 0.5 MG, QD,  (ONE TABLET DAILY)
     Route: 048
  3. SIMVASTATIN [Suspect]
     Active Substance: SIMVASTATIN
     Indication: Blood cholesterol abnormal
     Dosage: 20 MG, HS, (ONE TABLET AT NIGHT
     Route: 048
  4. ZOPICLONE [Suspect]
     Active Substance: ZOPICLONE
     Indication: Insomnia
     Dosage: 7.5 MG, HS, ONE TABLET AT NIGHT)
     Route: 048
  5. CHLOROQUINE SULFATE [Suspect]
     Active Substance: CHLOROQUINE SULFATE
     Indication: Product used for unknown indication
     Dosage: 200 MG, QW,  (ONE CAPSULE ONCE PER WEEK)
     Route: 048
  6. MIRABEGRON [Suspect]
     Active Substance: MIRABEGRON
     Indication: Bladder disorder
     Dosage: 50 MG, QD, ONE TABLET IN THE MORNING)
     Route: 048
  7. PRADAXA [Suspect]
     Active Substance: DABIGATRAN ETEXILATE MESYLATE
     Indication: Deep vein thrombosis
     Dosage: 110 MG, BID, (ONE CAPSULE TWICE A DAY)
     Route: 048
  8. RISPERIDONE [Suspect]
     Active Substance: RISPERIDONE
     Indication: Depression
     Dosage: 1 DOSAGE FORM, HS (ONE TABLET AT NIGHT)
     Route: 048
  9. EUTHYROX [Suspect]
     Active Substance: LEVOTHYROXINE SODIUM
     Indication: Hypothyroidism
     Dosage: 25 MCG, QD,  (ONE TABLET IN THE MORNING)
     Route: 048
  10. EUTHYROX [Suspect]
     Active Substance: LEVOTHYROXINE SODIUM
     Dosage: 100 MCG, QD,  (ONE TABLET IN THE MORNING)
     Route: 048
  11. ESCITALOPRAM [Suspect]
     Active Substance: ESCITALOPRAM OXALATE
     Indication: Depression
     Dosage: 10 MG, QD, (ONE TABLET DAILY)
     Route: 048

REACTIONS (2)
  - Hernia [Unknown]
  - Renal failure [Unknown]
